FAERS Safety Report 23923752 (Version 1)
Quarter: 2024Q2

REPORT INFORMATION
  Report Type: Spontaneous
  Country: US (occurrence: US)
  Receive Date: 20240531
  Receipt Date: 20240531
  Transmission Date: 20240715
  Serious: Yes (Death, Other)
  Sender: FDA-Public Use
  Company Number: US-GLAXOSMITHKLINE-US2024066366

PATIENT

DRUGS (2)
  1. JEMPERLI [Suspect]
     Active Substance: DOSTARLIMAB-GXLY
     Indication: Endometrial cancer
     Dosage: 500 MG
     Dates: start: 20240425
  2. CARBOPLATIN\PACLITAXEL [Suspect]
     Active Substance: CARBOPLATIN\PACLITAXEL
     Indication: Endometrial cancer
     Dosage: UNK
     Dates: start: 20240425

REACTIONS (19)
  - Cardiogenic shock [Fatal]
  - Myocarditis [Fatal]
  - Myocardial injury [Unknown]
  - Hypothyroidism [Unknown]
  - Atrial flutter [Unknown]
  - Gastrooesophageal reflux disease [Unknown]
  - Dyspnoea [Unknown]
  - Chest discomfort [Unknown]
  - Muscular weakness [Unknown]
  - Fatigue [Unknown]
  - Visual impairment [Unknown]
  - Diplopia [Unknown]
  - Troponin increased [Unknown]
  - Glucose tolerance impaired [Unknown]
  - Electrocardiogram abnormal [Unknown]
  - Pleural effusion [Unknown]
  - Atelectasis [Unknown]
  - Eyelid ptosis [Unknown]
  - Troponin T increased [Unknown]

NARRATIVE: CASE EVENT DATE: 20240517
